FAERS Safety Report 9030555 (Version 6)
Quarter: 2014Q2

REPORT INFORMATION
  Report Type: Spontaneous
  Country: US (occurrence: US)
  Receive Date: 20130122
  Receipt Date: 20140409
  Transmission Date: 20141212
  Serious: Yes (Hospitalization, Disabling, Other)
  Sender: FDA-Public Use
  Company Number: US-009507513-1301USA009730

PATIENT
  Sex: Female
  Weight: 68.48 kg

DRUGS (4)
  1. FOSAMAX [Suspect]
     Indication: OSTEOPENIA
     Dosage: 70 MG, QW
     Route: 048
     Dates: start: 20030710
  2. FOSAMAX [Suspect]
     Dosage: 10 MG, QD
     Route: 048
  3. ALENDRONATE SODIUM [Suspect]
     Indication: OSTEOPENIA
     Dosage: 70 MG, UNK
     Route: 048
     Dates: start: 20080726
  4. ESTROGENS (UNSPECIFIED) [Concomitant]
     Dosage: UNK
     Dates: start: 1980

REACTIONS (38)
  - Hip fracture [Unknown]
  - Open reduction of fracture [Unknown]
  - Femur fracture [Unknown]
  - Hip fracture [Unknown]
  - Spinal laminectomy [Unknown]
  - Spinal fusion surgery [Unknown]
  - Fibromyalgia [Not Recovered/Not Resolved]
  - Pain [Not Recovered/Not Resolved]
  - Spinal osteoarthritis [Not Recovered/Not Resolved]
  - Hospitalisation [Unknown]
  - Hospitalisation [Unknown]
  - Rotator cuff repair [Unknown]
  - Rotator cuff repair [Unknown]
  - Basal cell carcinoma [Unknown]
  - Low turnover osteopathy [Unknown]
  - Arthropathy [Unknown]
  - Depression [Unknown]
  - Pelvic fracture [Unknown]
  - Fall [Unknown]
  - Incisional drainage [Unknown]
  - Scoliosis [Unknown]
  - Pubis fracture [Unknown]
  - Dental prosthesis user [Unknown]
  - Arthritis [Unknown]
  - Neuropathy peripheral [Unknown]
  - Peptic ulcer [Unknown]
  - Hypertension [Unknown]
  - Depression [Unknown]
  - Sleep disorder [Unknown]
  - Trigger finger [Unknown]
  - Bronchitis [Unknown]
  - Anaemia [Unknown]
  - Back pain [Not Recovered/Not Resolved]
  - Back pain [Unknown]
  - Arthralgia [Not Recovered/Not Resolved]
  - Gastritis [Unknown]
  - Drug ineffective [Unknown]
  - Drug ineffective [Unknown]
